FAERS Safety Report 9997721 (Version 2)
Quarter: 2015Q1

REPORT INFORMATION
  Report Type: Spontaneous
  Country: US (occurrence: None)
  Receive Date: 20140225
  Receipt Date: 20150225
  Transmission Date: 20150721
  Serious: Yes (Other)
  Sender: FDA-Public Use
  Company Number: 2013-US-004315

PATIENT
  Age: 65 Year
  Sex: Female

DRUGS (1)
  1. PRIALT [Suspect]
     Active Substance: ZICONOTIDE ACETATE
     Indication: BACK PAIN
     Route: 037

REACTIONS (8)
  - Hallucination [None]
  - Confusional state [None]
  - Ataxia [None]
  - Balance disorder [None]
  - Depression [None]
  - Aphasia [None]
  - Tremor [None]
  - Memory impairment [None]

NARRATIVE: CASE EVENT DATE: 201310
